FAERS Safety Report 5122182-9 (Version None)
Quarter: 2006Q4

REPORT INFORMATION
  Report Type: 
  Country: None (occurrence: None)
  Receive Date: 20061006
  Receipt Date: 20060919
  Transmission Date: 20070319
  Serious: Yes (Death, Hospitalization, Other)
  Sender: FDA-Public Use
  Company Number: FR-ABBOTT-06P-056-0344415-00

PATIENT
  Sex: Male

DRUGS (7)
  1. RITONAVIR SOFT GELATIN CAPSULES [Suspect]
     Indication: END STAGE AIDS
     Route: 065
  2. TIPRANAVIR [Suspect]
     Indication: END STAGE AIDS
     Route: 065
  3. ABACAVIR [Suspect]
     Indication: END STAGE AIDS
     Route: 065
  4. STAVUDINE [Suspect]
     Indication: END STAGE AIDS
     Route: 065
  5. LAMIVUDINE [Suspect]
     Indication: END STAGE AIDS
     Route: 065
  6. ENFUVIRTIDE [Suspect]
     Indication: END STAGE AIDS
     Route: 065
  7. FOSCARNET [Suspect]
     Indication: END STAGE AIDS
     Route: 042

REACTIONS (10)
  - DISEASE PROGRESSION [None]
  - DRUG RESISTANCE [None]
  - HIV INFECTION [None]
  - IMMUNODEFICIENCY [None]
  - MULTIPLE-DRUG RESISTANCE [None]
  - OEDEMA [None]
  - PROTEINURIA [None]
  - RENAL FAILURE [None]
  - RENAL IMPAIRMENT [None]
  - VIRAL MUTATION IDENTIFIED [None]
